APPROVED DRUG PRODUCT: AMIODARONE HYDROCHLORIDE
Active Ingredient: AMIODARONE HYDROCHLORIDE
Strength: 50MG/ML
Dosage Form/Route: INJECTABLE;INJECTION
Application: A077161 | Product #001 | TE Code: AP
Applicant: GLAND PHARMA LTD
Approved: Apr 20, 2005 | RLD: No | RS: Yes | Type: RX